FAERS Safety Report 16372292 (Version 1)
Quarter: 2019Q2

REPORT INFORMATION
  Report Type: Spontaneous
  Country: US (occurrence: US)
  Receive Date: 20190530
  Receipt Date: 20190530
  Transmission Date: 20190711
  Serious: No
  Sender: FDA-Public Use
  Company Number: US-PERRIGO-18US012587

PATIENT
  Age: 52 Year
  Sex: Female
  Weight: 79.82 kg

DRUGS (2)
  1. VITAMINS                           /90003601/ [Concomitant]
     Active Substance: VITAMINS
     Indication: SUPPLEMENTATION THERAPY
     Dosage: UNK
     Route: 048
  2. TRIAMCINOLONE ACETONIDE. [Suspect]
     Active Substance: TRIAMCINOLONE ACETONIDE
     Indication: DERMATITIS CONTACT
     Dosage: 1 APPLICATION, BID
     Route: 061
     Dates: start: 20181029, end: 20181030

REACTIONS (2)
  - Joint swelling [Recovered/Resolved]
  - Skin discolouration [Recovered/Resolved]

NARRATIVE: CASE EVENT DATE: 20181029
